FAERS Safety Report 9342381 (Version 1)
Quarter: 2013Q2

REPORT INFORMATION
  Report Type: Spontaneous
  Country: MT (occurrence: None)
  Receive Date: 20130607
  Receipt Date: 20130607
  Transmission Date: 20140414
  Serious: Yes (Hospitalization, Other)
  Sender: FDA-Public Use
  Company Number: AUR-APL-2013-04618

PATIENT
  Age: 81 Year
  Sex: Female

DRUGS (3)
  1. SIMVASTATIN (SIMVASTATIN) [Suspect]
     Indication: HYPERCHOLESTEROLAEMIA
     Dosage: 1 D
  2. PERINDOPRIL (PERINDOPRIL) [Concomitant]
  3. ASPIRINE (ACETYLSALICYLIC ACID) [Concomitant]

REACTIONS (1)
  - Rhabdomyolysis [None]
